FAERS Safety Report 6038118-2 (Version None)
Quarter: 2009Q1

REPORT INFORMATION
  Report Type: 
  Country: None (occurrence: None)
  Receive Date: 20090113
  Receipt Date: 20090113
  Transmission Date: 20090719
  Serious: Yes (Other)
  Sender: FDA-Public Use
  Company Number: None

PATIENT
  Age: 37 Year
  Sex: Female
  Weight: 79.3795 kg

DRUGS (1)
  1. ALPRAZOLAM [Suspect]
     Indication: STRESS
     Dosage: .25MG BID PO
     Route: 048
     Dates: start: 19990901, end: 20080630

REACTIONS (8)
  - ACTIVITIES OF DAILY LIVING IMPAIRED [None]
  - ANXIETY [None]
  - DIZZINESS [None]
  - HYSTERECTOMY [None]
  - IMPAIRED WORK ABILITY [None]
  - PALPITATIONS [None]
  - PANIC ATTACK [None]
  - VISION BLURRED [None]
